FAERS Safety Report 25859729 (Version 1)
Quarter: 2025Q3

REPORT INFORMATION
  Report Type: Spontaneous
  Country: CN (occurrence: CN)
  Receive Date: 20250929
  Receipt Date: 20250929
  Transmission Date: 20251020
  Serious: Yes (Hospitalization)
  Sender: COHERUS
  Company Number: CN-SHANGHAI JUNSHI BIOSCIENCES CO., LTD.-CN2025015822

PATIENT

DRUGS (12)
  1. TORIPALIMAB [Suspect]
     Active Substance: TORIPALIMAB
     Indication: Bladder cancer
     Route: 041
     Dates: start: 20250509, end: 20250509
  2. TORIPALIMAB [Suspect]
     Active Substance: TORIPALIMAB
     Route: 041
     Dates: start: 20250523, end: 20250523
  3. TORIPALIMAB [Suspect]
     Active Substance: TORIPALIMAB
     Route: 041
     Dates: start: 20250606, end: 20250606
  4. TORIPALIMAB [Suspect]
     Active Substance: TORIPALIMAB
     Route: 041
     Dates: start: 20250620, end: 20250620
  5. TORIPALIMAB [Suspect]
     Active Substance: TORIPALIMAB
     Route: 041
     Dates: start: 20250704, end: 20250704
  6. TORIPALIMAB [Suspect]
     Active Substance: TORIPALIMAB
     Route: 041
     Dates: start: 20250718, end: 20250718
  7. DISITAMAB VEDOTIN [Suspect]
     Active Substance: DISITAMAB VEDOTIN
     Indication: Bladder cancer
     Route: 041
     Dates: start: 20250509, end: 20250509
  8. DISITAMAB VEDOTIN [Suspect]
     Active Substance: DISITAMAB VEDOTIN
     Route: 041
     Dates: start: 20250523, end: 20250523
  9. DISITAMAB VEDOTIN [Suspect]
     Active Substance: DISITAMAB VEDOTIN
     Route: 041
     Dates: start: 20250606, end: 20250606
  10. DISITAMAB VEDOTIN [Suspect]
     Active Substance: DISITAMAB VEDOTIN
     Route: 041
     Dates: start: 20250620, end: 20250620
  11. DISITAMAB VEDOTIN [Suspect]
     Active Substance: DISITAMAB VEDOTIN
     Route: 041
     Dates: start: 20250704, end: 20250704
  12. DISITAMAB VEDOTIN [Suspect]
     Active Substance: DISITAMAB VEDOTIN
     Route: 041
     Dates: start: 20250718, end: 20250718

REACTIONS (1)
  - Peripheral nerve palsy [Unknown]

NARRATIVE: CASE EVENT DATE: 20250702
